FAERS Safety Report 18880253 (Version 3)
Quarter: 2021Q2

REPORT INFORMATION
  Report Type: Report from Study
  Country: US (occurrence: US)
  Receive Date: 20210211
  Receipt Date: 20210426
  Transmission Date: 20210717
  Serious: No
  Sender: FDA-Public Use
  Company Number: US-TAKEDA-2021TUS007785

PATIENT
  Sex: Female
  Weight: 68 kg

DRUGS (16)
  1. OMEPRAZOLE. [Concomitant]
     Active Substance: OMEPRAZOLE
  2. MULTIVITAMINS [VITAMINS NOS] [Concomitant]
     Active Substance: VITAMINS
  3. CUVITRU [Suspect]
     Active Substance: HUMAN IMMUNOGLOBULIN G
     Dosage: 14 GRAM, 1/WEEK
     Route: 058
     Dates: start: 20210119
  4. AMLODIPINE [Concomitant]
     Active Substance: AMLODIPINE BESYLATE
  5. ZINC + VITAMIN C [Concomitant]
     Active Substance: ASCORBIC ACID\ZINC
  6. LEVOTHYROXINE. [Concomitant]
     Active Substance: LEVOTHYROXINE
  7. VITAMINS NOS [Concomitant]
     Active Substance: VITAMINS
  8. CUVITRU [Suspect]
     Active Substance: HUMAN IMMUNOGLOBULIN G
     Indication: IMMUNODEFICIENCY COMMON VARIABLE
     Dosage: 14 MILLIGRAM, 1/WEEK
     Route: 058
     Dates: start: 20210119
  9. ACETAMINOPHEN. [Concomitant]
     Active Substance: ACETAMINOPHEN
  10. DIPHENHYDRAMINE. [Concomitant]
     Active Substance: DIPHENHYDRAMINE
  11. XANAX [Concomitant]
     Active Substance: ALPRAZOLAM
  12. AZITHROMYCIN ANHYDROUS. [Concomitant]
     Active Substance: AZITHROMYCIN ANHYDROUS
  13. EPINEPHRINE. [Concomitant]
     Active Substance: EPINEPHRINE
  14. BOTOX [Concomitant]
     Active Substance: ONABOTULINUMTOXINA
  15. LOSARTAN. [Concomitant]
     Active Substance: LOSARTAN
  16. LEXAPRO [Concomitant]
     Active Substance: ESCITALOPRAM OXALATE

REACTIONS (3)
  - Sinusitis [Unknown]
  - Nausea [Unknown]
  - Dizziness [Unknown]
